FAERS Safety Report 6343088-3 (Version None)
Quarter: 2009Q3

REPORT INFORMATION
  Report Type: 
  Country: None (occurrence: None)
  Receive Date: 20090821
  Receipt Date: 20090514
  Transmission Date: 20100115
  Serious: No
  Sender: FDA-Public Use
  Company Number: 8046491

PATIENT
  Age: 32 Year
  Sex: Female

DRUGS (6)
  1. CIMZIA [Suspect]
     Indication: CROHN'S DISEASE
     Dosage: 400 MG SC
     Route: 058
     Dates: start: 20090428
  2. LISINOPRIL/HYDROCHLORITHIAZIDE [Concomitant]
  3. METHOTREXATE [Concomitant]
  4. KLONOPIN [Concomitant]
  5. MAXALT [Concomitant]
  6. WELLBUTRIN [Concomitant]

REACTIONS (3)
  - INJECTION SITE WARMTH [None]
  - PAIN [None]
  - URTICARIA [None]
